FAERS Safety Report 6372234-0 (Version None)
Quarter: 2009Q3

REPORT INFORMATION
  Report Type: 
  Country: None (occurrence: None)
  Receive Date: 20090924
  Receipt Date: 20090914
  Transmission Date: 20100115
  Serious: Yes (Hospitalization, Other)
  Sender: FDA-Public Use
  Company Number: US-BIOGENIDEC-179830

PATIENT
  Age: 50 Year
  Sex: Female
  Weight: 71 kg

DRUGS (10)
  1. AVONEX [Suspect]
     Indication: MULTIPLE SCLEROSIS
     Route: 030
     Dates: start: 20020501, end: 20030801
  2. AVONEX [Suspect]
     Route: 030
     Dates: end: 20041212
  3. WELLBUTRIN [Concomitant]
     Indication: DEPRESSION
     Dates: start: 20030101
  4. ANTIDEPRESSANTS (NOS) [Concomitant]
     Indication: DEPRESSION
     Dates: start: 19900101, end: 20030101
  5. NEURONTIN [Concomitant]
     Indication: MULTIPLE SCLEROSIS
     Dates: start: 20020501
  6. AMANTADINE HCL [Concomitant]
     Indication: MULTIPLE SCLEROSIS
     Dates: start: 20010901
  7. PROVIGIL [Concomitant]
     Indication: FATIGUE
     Dates: start: 20030801
  8. ASPIRIN [Concomitant]
     Indication: DRUG USE FOR UNKNOWN INDICATION
  9. LEXAPRO [Concomitant]
     Indication: DRUG USE FOR UNKNOWN INDICATION
  10. TOPROL-XL [Concomitant]
     Indication: DRUG USE FOR UNKNOWN INDICATION

REACTIONS (5)
  - CARDIAC FAILURE CONGESTIVE [None]
  - CHEST DISCOMFORT [None]
  - CONGESTIVE CARDIOMYOPATHY [None]
  - LUNG INFECTION [None]
  - PNEUMONIA [None]
